FAERS Safety Report 5123847-5 (Version None)
Quarter: 2006Q4

REPORT INFORMATION
  Report Type: 
  Country: None (occurrence: None)
  Receive Date: 20061010
  Receipt Date: 20060322
  Transmission Date: 20070319
  Serious: Yes (Disabling)
  Sender: FDA-Public Use
  Company Number: JP-JPN-A200601004

PATIENT
  Age: 70 Year
  Sex: Female

DRUGS (5)
  1. PAXIL [Suspect]
     Indication: DEPRESSION
     Dosage: 10MG PER DAY
     Route: 048
     Dates: start: 20051024, end: 20051230
  2. OXYCONTIN [Suspect]
     Indication: INSOMNIA
     Route: 048
     Dates: start: 20051024, end: 20051230
  3. DEPAS [Concomitant]
     Indication: INSOMNIA
     Route: 048
     Dates: start: 20051024, end: 20051230
  4. SOLANAX [Concomitant]
     Indication: ANXIETY
     Route: 048
     Dates: start: 20051024, end: 20051230
  5. KADIAN [Concomitant]
     Indication: PAIN
     Dosage: 20MG PER DAY
     Route: 065
     Dates: start: 20051228, end: 20051230

REACTIONS (4)
  - ABNORMAL BEHAVIOUR [None]
  - AMNESIA [None]
  - DEPRESSED LEVEL OF CONSCIOUSNESS [None]
  - SOMNOLENCE [None]
